FAERS Safety Report 5533239-2 (Version None)
Quarter: 2007Q4

REPORT INFORMATION
  Report Type: 
  Country: None (occurrence: None)
  Receive Date: 20071204
  Receipt Date: 20071128
  Transmission Date: 20080405
  Serious: Yes (Hospitalization, Congenital Anomaly)
  Sender: FDA-Public Use
  Company Number: A0664388A

PATIENT
  Sex: Male

DRUGS (4)
  1. PAXIL [Suspect]
     Indication: DEPRESSION
     Dosage: 20MG PER DAY
     Dates: start: 20010101, end: 20030901
  2. NAPROXEN [Concomitant]
     Dates: start: 20011201, end: 20050501
  3. CYCLOBENZAPRINE HCL [Concomitant]
     Dates: start: 20020901, end: 20050501
  4. PRENATAL VITAMINS [Concomitant]
     Dates: start: 20021201, end: 20030601

REACTIONS (6)
  - DRUG EXPOSURE DURING PREGNANCY [None]
  - HEART DISEASE CONGENITAL [None]
  - INFUSION SITE EXTRAVASATION [None]
  - SCAR [None]
  - TRANSPOSITION OF THE GREAT VESSELS [None]
  - VEIN DISORDER [None]
